FAERS Safety Report 24137356 (Version 1)
Quarter: 2024Q3

REPORT INFORMATION
  Report Type: Spontaneous
  Country: US (occurrence: US)
  Receive Date: 20240725
  Receipt Date: 20240725
  Transmission Date: 20241017
  Serious: No
  Sender: ROCHE
  Company Number: US-ROCHE-10000032968

PATIENT
  Age: 15 Month
  Sex: Male

DRUGS (1)
  1. HEMLIBRA [Suspect]
     Active Substance: EMICIZUMAB-KXWH
     Indication: Factor VIII deficiency
     Dosage: DRUG WAS STARTED SINCE THE CHILD WAS 3 MONTHS OLD.
     Route: 058

REACTIONS (2)
  - Mass [Not Recovered/Not Resolved]
  - Contusion [Not Recovered/Not Resolved]
